FAERS Safety Report 5980691-4 (Version None)
Quarter: 2008Q4

REPORT INFORMATION
  Report Type: 
  Country: None (occurrence: None)
  Receive Date: 20081205
  Receipt Date: 20080306
  Transmission Date: 20090506
  Serious: No
  Sender: FDA-Public Use
  Company Number: A0715302A

PATIENT
  Age: 20 Year
  Sex: Female
  Weight: 42.7 kg

DRUGS (1)
  1. COMMIT [Suspect]
     Indication: SMOKING CESSATION THERAPY
     Route: 002
     Dates: start: 20070101

REACTIONS (1)
  - ABDOMINAL DISCOMFORT [None]
